FAERS Safety Report 12172790 (Version 3)
Quarter: 2016Q2

REPORT INFORMATION
  Report Type: Report from Study
  Country: US (occurrence: US)
  Receive Date: 20160311
  Receipt Date: 20160405
  Transmission Date: 20160815
  Serious: Yes (Other)
  Sender: FDA-Public Use
  Company Number: US-BAYER-2016-047076

PATIENT
  Age: 84 Year
  Sex: Male

DRUGS (1)
  1. NEXAVAR [Suspect]
     Active Substance: SORAFENIB
     Indication: HEPATIC CANCER
     Dosage: 400 MG, BID
     Route: 048

REACTIONS (6)
  - Musculoskeletal pain [None]
  - Hepatic haematoma [None]
  - Insomnia [None]
  - Liver function test increased [None]
  - Abdominal pain [None]
  - Muscle spasms [None]

NARRATIVE: CASE EVENT DATE: 20160306
